FAERS Safety Report 6031401-6 (Version None)
Quarter: 2009Q1

REPORT INFORMATION
  Report Type: 
  Country: None (occurrence: None)
  Receive Date: 20090108
  Receipt Date: 20081230
  Transmission Date: 20090719
  Serious: Yes (Other)
  Sender: FDA-Public Use
  Company Number: US-JNJCH-2009000043

PATIENT
  Age: 51 Year
  Sex: Female
  Weight: 85.3 kg

DRUGS (1)
  1. ROGAINE [Suspect]
     Indication: ALOPECIA
     Route: 061
     Dates: start: 20080922, end: 20081220

REACTIONS (2)
  - APPLICATION SITE ERYTHEMA [None]
  - APPLICATION SITE VESICLES [None]
